FAERS Safety Report 4412883-X (Version None)
Quarter: 2004Q3

REPORT INFORMATION
  Report Type: 
  Country: None (occurrence: None)
  Receive Date: 20040730
  Receipt Date: 20040730
  Transmission Date: 20050211
  Serious: Yes (Hospitalization)
  Sender: FDA-Public Use
  Company Number: None

PATIENT
  Age: 51 Year
  Sex: Female
  Weight: 99.7913 kg

DRUGS (1)
  1. CELEBREX [Suspect]
     Dosage: 200 MG PO QAM
     Route: 048
     Dates: start: 20040725

REACTIONS (3)
  - CHEST PAIN [None]
  - DYSPNOEA [None]
  - RASH [None]
